FAERS Safety Report 13388982 (Version 6)
Quarter: 2017Q4

REPORT INFORMATION
  Report Type: Report from Study
  Country: CN (occurrence: CN)
  Receive Date: 20170330
  Receipt Date: 20171211
  Transmission Date: 20180320
  Serious: Yes (Hospitalization)
  Sender: FDA-Public Use
  Company Number: CN-ROCHE-1908254

PATIENT
  Age: 39 Year
  Sex: Female
  Weight: 52.5 kg

DRUGS (37)
  1. GLUTATHIONE [Concomitant]
     Active Substance: GLUTATHIONE
     Route: 065
     Dates: start: 20170309, end: 20170315
  2. DEXAMETHASONE SODIUM PHOSPHATE. [Concomitant]
     Active Substance: DEXAMETHASONE SODIUM PHOSPHATE
     Route: 065
     Dates: start: 20170316, end: 20170316
  3. MONOSIALOTETRAHEXOSYLGANGLIOSIDE SODIUM [Concomitant]
     Route: 065
     Dates: start: 20170316, end: 20170316
  4. PROMETHAZINE HYDROCHLORIDE. [Concomitant]
     Active Substance: PROMETHAZINE HYDROCHLORIDE
     Route: 065
     Dates: start: 20170215, end: 20170215
  5. DOCETAXEL. [Suspect]
     Active Substance: DOCETAXEL
     Indication: HER-2 POSITIVE BREAST CANCER
     Dosage: DATE OF MOST RECENT DOSE PRIOR TO ONSET OF SERIOUS ADVERSE EVENT: 15/FEB/2017
     Route: 042
     Dates: start: 20170215
  6. DEXAMETHASONE ACETATE [Concomitant]
     Active Substance: DEXAMETHASONE ACETATE
     Route: 065
     Dates: start: 20170214
  7. LANSOPRAZOLE. [Concomitant]
     Active Substance: LANSOPRAZOLE
     Route: 065
     Dates: start: 20170316, end: 20170316
  8. GLUTATHIONE [Concomitant]
     Active Substance: GLUTATHIONE
     Route: 065
     Dates: start: 20170215, end: 20170215
  9. DEXAMETHASONE SODIUM PHOSPHATE. [Concomitant]
     Active Substance: DEXAMETHASONE SODIUM PHOSPHATE
     Route: 065
     Dates: start: 20170215, end: 20170215
  10. MONOSIALOTETRAHEXOSYLGANGLIOSIDE SODIUM [Concomitant]
     Route: 065
     Dates: start: 20170215, end: 20170215
  11. ESOMEPRAZOLE SODIUM. [Concomitant]
     Active Substance: ESOMEPRAZOLE SODIUM
     Route: 065
     Dates: start: 20170427, end: 20170427
  12. DEXAMETHASONE ACETATE [Concomitant]
     Active Substance: DEXAMETHASONE ACETATE
     Route: 065
     Dates: start: 20170426, end: 20170427
  13. GLUTATHIONE [Concomitant]
     Active Substance: GLUTATHIONE
     Route: 065
     Dates: start: 20170316, end: 20170316
  14. GLUTATHIONE [Concomitant]
     Active Substance: GLUTATHIONE
     Route: 065
     Dates: start: 20170216, end: 20170216
  15. PALONOSETRON HYDROCHLORIDE. [Concomitant]
     Active Substance: PALONOSETRON HYDROCHLORIDE
     Route: 065
     Dates: start: 20170316, end: 20170316
  16. ONDANSETRON HYDROCHLORIDE. [Concomitant]
     Active Substance: ONDANSETRON HYDROCHLORIDE
     Route: 065
     Dates: start: 20170215
  17. LIDOCAINE HYDROCHLORIDE. [Concomitant]
     Active Substance: LIDOCAINE HYDROCHLORIDE
     Route: 065
     Dates: start: 20170214, end: 20170214
  18. GLUTATHIONE [Concomitant]
     Active Substance: GLUTATHIONE
     Route: 065
     Dates: start: 20170427, end: 20170427
  19. PROMETHAZINE HYDROCHLORIDE. [Concomitant]
     Active Substance: PROMETHAZINE HYDROCHLORIDE
     Route: 065
     Dates: start: 20170316, end: 20170316
  20. FILGRASTIM [Concomitant]
     Active Substance: FILGRASTIM
     Route: 065
     Dates: start: 20170318, end: 20170318
  21. TRASTUZUMAB. [Suspect]
     Active Substance: TRASTUZUMAB
     Indication: HER-2 POSITIVE BREAST CANCER
     Dosage: LOADING DOSE?DATE OF MOST RECENT DOSE PRIOR TO TO ONSET OF SERIOUS ADVERSE EVENT: 15/FEB/2017
     Route: 042
     Dates: start: 20170215
  22. DEXAMETHASONE ACETATE [Concomitant]
     Active Substance: DEXAMETHASONE ACETATE
     Route: 065
     Dates: start: 20170316, end: 20170316
  23. ADEMETIONINE 1,4-BUTANEDISULFONATE [Concomitant]
     Route: 065
     Dates: start: 20170316, end: 20170316
  24. PALONOSETRON HYDROCHLORIDE. [Concomitant]
     Active Substance: PALONOSETRON HYDROCHLORIDE
     Route: 065
     Dates: start: 20170427, end: 20170427
  25. ADEMETIONINE 1,4-BUTANEDISULFONATE [Concomitant]
     Route: 065
     Dates: start: 20170216, end: 20170216
  26. ADEMETIONINE 1,4-BUTANEDISULFONATE [Concomitant]
     Route: 065
     Dates: start: 20170427, end: 20170427
  27. MONOSIALOTETRAHEXOSYLGANGLIOSIDE SODIUM [Concomitant]
     Route: 065
     Dates: start: 20170427, end: 20170427
  28. LANSOPRAZOLE. [Concomitant]
     Active Substance: LANSOPRAZOLE
     Route: 065
     Dates: start: 20170216, end: 20170216
  29. ONDANSETRON HYDROCHLORIDE. [Concomitant]
     Active Substance: ONDANSETRON HYDROCHLORIDE
     Route: 065
     Dates: start: 20170316, end: 20170316
  30. ONDANSETRON HYDROCHLORIDE. [Concomitant]
     Active Substance: ONDANSETRON HYDROCHLORIDE
     Route: 065
     Dates: start: 20170215, end: 20170215
  31. PERTUZUMAB. [Suspect]
     Active Substance: PERTUZUMAB
     Indication: HER-2 POSITIVE BREAST CANCER
     Dosage: LOADING DOSE?DATE OF MOST RECENT DOSE PRIOR TO TO ONSET OF SERIOUS ADVERSE EVENT: 15/FEB/2017
     Route: 042
     Dates: start: 20170215
  32. PEGFILGRASTIM [Concomitant]
     Active Substance: PEGFILGRASTIM
  33. LANSOPRAZOLE. [Concomitant]
     Active Substance: LANSOPRAZOLE
     Route: 065
     Dates: start: 20170215, end: 20170215
  34. ADEMETIONINE 1,4-BUTANEDISULFONATE [Concomitant]
     Route: 065
     Dates: start: 20170215, end: 20170215
  35. PALONOSETRON HYDROCHLORIDE. [Concomitant]
     Active Substance: PALONOSETRON HYDROCHLORIDE
     Route: 065
     Dates: start: 20170215, end: 20170215
  36. PROMETHAZINE HYDROCHLORIDE. [Concomitant]
     Active Substance: PROMETHAZINE HYDROCHLORIDE
     Route: 065
     Dates: start: 20170427, end: 20170427
  37. FILGRASTIM [Concomitant]
     Active Substance: FILGRASTIM
     Route: 065
     Dates: start: 20170216, end: 20170216

REACTIONS (1)
  - Liver disorder [Recovered/Resolved]

NARRATIVE: CASE EVENT DATE: 20170302
